FAERS Safety Report 9432021 (Version 1)
Quarter: 2013Q3

REPORT INFORMATION
  Report Type: Spontaneous
  Country: CH (occurrence: CH)
  Receive Date: 20130731
  Receipt Date: 20130731
  Transmission Date: 20140515
  Serious: Yes (Hospitalization)
  Sender: FDA-Public Use
  Company Number: CH-ACCORD-018716

PATIENT
  Age: 48 Year
  Sex: Female

DRUGS (4)
  1. DOCETAXEL [Suspect]
     Indication: BREAST CANCER STAGE II
  2. CYCLOPHOSPHAMIDE [Concomitant]
     Indication: BREAST CANCER STAGE II
     Dosage: THREE CYCLES COMPLETED
  3. EPIRUBICIN [Concomitant]
     Indication: BREAST CANCER STAGE II
     Dosage: THREE CYCLES COMPLETED
  4. FLUOROURACIL [Concomitant]
     Indication: BREAST CANCER STAGE II
     Dosage: THREE CYCLES COMPLETED

REACTIONS (2)
  - Subacute cutaneous lupus erythematosus [Recovered/Resolved]
  - Chillblains [Recovered/Resolved]
